FAERS Safety Report 12257030 (Version 1)
Quarter: 2016Q2

REPORT INFORMATION
  Report Type: Spontaneous
  Country: None (occurrence: None)
  Receive Date: 20160411
  Receipt Date: 20160411
  Transmission Date: 20160815
  Serious: Yes (Other)
  Sender: FDA-Public Use
  Company Number: None

PATIENT
  Age: 27 Year
  Sex: Female

DRUGS (1)
  1. TRI-LO-SPRINTEC [Suspect]
     Active Substance: ETHINYL ESTRADIOL\NORGESTIMATE
     Dates: start: 20160228, end: 20160302

REACTIONS (4)
  - Swelling face [None]
  - Product substitution issue [None]
  - Pharyngeal oedema [None]
  - Urticaria [None]

NARRATIVE: CASE EVENT DATE: 20160302
